FAERS Safety Report 23470998 (Version 2)
Quarter: 2024Q2

REPORT INFORMATION
  Report Type: Spontaneous
  Country: DE (occurrence: DE)
  Receive Date: 20240202
  Receipt Date: 20240412
  Transmission Date: 20240716
  Serious: Yes (Death, Hospitalization)
  Sender: FDA-Public Use
  Company Number: DE-SAMSUNG BIOEPIS-SB-2023-32798

PATIENT
  Age: 63 Year
  Sex: Male

DRUGS (21)
  1. LEUCOVORIN [Suspect]
     Active Substance: LEUCOVORIN\LEUCOVORIN CALCIUM
     Indication: Oesophageal adenocarcinoma
     Dosage: (200 MG/M2) D1/D15/D29 AND D43 PRE-AND POST OP?FORM OF ADMIN: UNKNOWN (OTHER/UNSPECIFIED) ?BDF-0096
     Dates: start: 20230614
  2. LEUCOVORIN [Suspect]
     Active Substance: LEUCOVORIN\LEUCOVORIN CALCIUM
     Dosage: FORM OF ADMIN: UNKNOWN (OTHER/UNSPECIFIED) ?BDF-0096?ROUTE OF ADMIN: INTRAVENOUS
     Dates: start: 20230801
  3. LEUCOVORIN [Suspect]
     Active Substance: LEUCOVORIN\LEUCOVORIN CALCIUM
     Dosage: D1/D15/D29 AND D43 PRE-AND POST OP?200 MG/M2?FORM: UNKNOWN (OTHER/UNSPECIFIED) ?ROA: INTRAVENOUS?ROA
  4. OXALIPLATIN [Suspect]
     Active Substance: OXALIPLATIN
     Indication: Oesophageal adenocarcinoma
     Dosage: D1/D15/D29 AND D43 PRE-AND POST OP?FORM OF ADMIN: UNKNOWN (OTHER/UNSPECIFIED) ?BDF-0096?ROUTE OF ADM
     Dates: start: 20230614
  5. OXALIPLATIN [Suspect]
     Active Substance: OXALIPLATIN
     Dosage: FORM OF ADMIN: UNKNOWN (OTHER/UNSPECIFIED) ?BDF-0096?ROUTE OF ADMIN: INTRAVENOUS
     Dates: start: 20230801
  6. OXALIPLATIN [Suspect]
     Active Substance: OXALIPLATIN
     Dosage: D1/D15/D29 AND D43 PRE-AND POST OP?85 MG/M2?FORM: UNSPECIFIED/OTHER?ROA: INTRAVENOUS
  7. DOCETAXEL [Suspect]
     Active Substance: DOCETAXEL\DOCETAXEL ANHYDROUS
     Indication: Oesophageal adenocarcinoma
     Dosage: (50 MG/M2) D1/D15/D29 AND D43 PRE-AND POST OP?FOA: UNKNOWN (OTHER/UNSPECIFIED) ?BDF-0096?ROA-2004500
     Dates: start: 20230614
  8. DOCETAXEL [Suspect]
     Active Substance: DOCETAXEL\DOCETAXEL ANHYDROUS
     Dosage: FOA: UNKNOWN (OTHER/UNSPECIFIED) ?BDF-0096?ROA-20045000
     Dates: start: 20230801
  9. DOCETAXEL [Suspect]
     Active Substance: DOCETAXEL\DOCETAXEL ANHYDROUS
     Dosage: D1/D15/D29 AND D43 PRE-AND POST OP?50 MG/M2?ROA: INTRAVENOUS?FORM: UNSPECIFIED/OTHER
  10. DOCETAXEL [Suspect]
     Active Substance: DOCETAXEL\DOCETAXEL ANHYDROUS
     Dosage: D1/D15/D29 AND D43 PRE-AND POST OP?FORM: UNSPECIFIED/OTHER?50 MG/M2?ROA: INTRAVENOUS
  11. FLUOROURACIL [Suspect]
     Active Substance: FLUOROURACIL
     Indication: Oesophageal adenocarcinoma
     Dosage: (2600 MG/M2) D1/D15/D29 AND D43 PRE-AND POST OP?BDF-0096?ROA-20045000?UNKNOWN (OTHER/UNSPECIFIED)
     Dates: start: 20230614
  12. FLUOROURACIL [Suspect]
     Active Substance: FLUOROURACIL
     Dosage: BDF-0096?ROA-20045000?UNKNOWN (OTHER/UNSPECIFIED)
     Dates: start: 20230801
  13. FLUOROURACIL [Suspect]
     Active Substance: FLUOROURACIL
     Dosage: D1/D15/D29 AND D43 PRE-AND POST OP?2600 MG/M2?UNKNOWN (OTHER/UNSPECIFIED) ?INTRAVENOUS
  14. FLUOROURACIL [Suspect]
     Active Substance: FLUOROURACIL
     Dosage: D1/D15/D29 AND D43 PRE-AND POST OP?FORM: UNSPECIFIED/OTHER?ROA: INTRAVENOUS?2600 MG/M2
  15. ONTRUZANT [Suspect]
     Active Substance: TRASTUZUMAB-DTTB
     Indication: Oesophageal adenocarcinoma
     Dosage: D1 (8 MG/KG)?BDF-0096?ROA-20045000?FOA: UNKNOWN (OTHER/UNSPECIFIED)
     Dates: start: 20230614
  16. ONTRUZANT [Suspect]
     Active Substance: TRASTUZUMAB-DTTB
     Dosage: D22/D43 PRE AND POST OP, AFTERWARDS 6 MG/KG IV D1 Q3W?BDF-0096?ROA-20045000?FOA: UNKNOWN
  17. ONTRUZANT [Suspect]
     Active Substance: TRASTUZUMAB-DTTB
     Dates: start: 20231128
  18. PEMBROLIZUMAB [Suspect]
     Active Substance: PEMBROLIZUMAB
     Indication: Oesophageal adenocarcinoma
     Dosage: 200 MG FLAT DOSE, D1/D22/D43 PRE-AND POST OP, AFTERWARDS D1 Q3W.?BDF-0096?ROA-20045000?UNKNOWN (OTHE
     Dates: start: 20230614
  19. PEMBROLIZUMAB [Suspect]
     Active Substance: PEMBROLIZUMAB
     Dosage: BDF-0096?ROA-20045000?UNKNOWN (OTHER/UNSPECIFIED)
     Dates: start: 20231128
  20. PEMBROLIZUMAB [Suspect]
     Active Substance: PEMBROLIZUMAB
     Dosage: 200 MG FLAT DOSE, D1/D22/D43 PRE-AND POST OP, AFTERWARDS D1 Q3W.?200 MG?UNKNOWN (OTHER/UNSPECIFIED)
  21. PEMBROLIZUMAB [Suspect]
     Active Substance: PEMBROLIZUMAB
     Dosage: 200 MG FLAT DOSE, D1/D22/D43 PRE-AND POST OP, AFTERWARDS D1 Q3W.?200 MG?FORM: UNSPECIFIED/OTHER?ROA:

REACTIONS (2)
  - Sepsis [Fatal]
  - Product use in unapproved indication [None]

NARRATIVE: CASE EVENT DATE: 20231203
